FAERS Safety Report 10003864 (Version 2)
Quarter: 2014Q1

REPORT INFORMATION
  Report Type: Spontaneous
  Country: US (occurrence: US)
  Receive Date: 20140312
  Receipt Date: 20140312
  Transmission Date: 20141002
  Serious: Yes (Other)
  Sender: FDA-Public Use
  Company Number: US-INCYTE CORPORATION-2013IN002680

PATIENT
  Age: 72 Year
  Sex: Female
  Weight: 65.31 kg

DRUGS (8)
  1. JAKAFI [Suspect]
     Indication: MYELOFIBROSIS
     Dosage: 15 MG, BID
     Route: 048
     Dates: start: 20120719, end: 20120806
  2. JAKAFI [Suspect]
     Dosage: 5 MG, QD
     Route: 048
     Dates: start: 20120904, end: 20120924
  3. JAKAFI [Suspect]
     Dosage: 5 MG, QOD
     Route: 048
     Dates: start: 201301, end: 201303
  4. JAKAFI [Suspect]
     Dosage: NOT SPECIFIED
     Route: 048
     Dates: start: 201304
  5. ASPIRIN [Concomitant]
  6. NEXIUM                             /01479302/ [Concomitant]
  7. LASIX                              /00032601/ [Concomitant]
  8. HYDROCODONE BITARTRATE AND ACETAMINOPHEN [Concomitant]

REACTIONS (2)
  - Platelet count decreased [Recovering/Resolving]
  - Blood count abnormal [Unknown]
